FAERS Safety Report 12397375 (Version 1)
Quarter: 2016Q2

REPORT INFORMATION
  Report Type: Spontaneous
  Country: US (occurrence: US)
  Receive Date: 20160524
  Receipt Date: 20160524
  Transmission Date: 20160815
  Serious: Yes (Other)
  Sender: FDA-Public Use
  Company Number: US-PFIZER INC-2016268732

PATIENT
  Age: 84 Year
  Sex: Male

DRUGS (1)
  1. TOVIAZ [Suspect]
     Active Substance: FESOTERODINE FUMARATE
     Dosage: 16 MG

REACTIONS (2)
  - Intentional product use issue [Unknown]
  - Urinary retention [Unknown]

NARRATIVE: CASE EVENT DATE: 2016
